FAERS Safety Report 5588726-8 (Version None)
Quarter: 2008Q1

REPORT INFORMATION
  Report Type: 
  Country: None (occurrence: None)
  Receive Date: 20080111
  Receipt Date: 20080103
  Transmission Date: 20080703
  Serious: Yes (Other)
  Sender: FDA-Public Use
  Company Number: B0360526A

PATIENT
  Age: 21 Year
  Sex: Male

DRUGS (1)
  1. PAROXETINE HYDROCHLORIDE [Suspect]
     Indication: PANIC ATTACK
     Route: 065
     Dates: start: 19950310

REACTIONS (15)
  - ABNORMAL DREAMS [None]
  - ANXIETY [None]
  - BALANCE DISORDER [None]
  - DIZZINESS [None]
  - FATIGUE [None]
  - FEELING OF DESPAIR [None]
  - HALLUCINATION [None]
  - HYPERHIDROSIS [None]
  - NAUSEA [None]
  - PARAESTHESIA [None]
  - PSYCHIATRIC SYMPTOM [None]
  - RESTLESSNESS [None]
  - SYNCOPE [None]
  - TREMOR [None]
  - WITHDRAWAL SYNDROME [None]
